FAERS Safety Report 9104847 (Version 1)
Quarter: 2013Q1

REPORT INFORMATION
  Report Type: Spontaneous
  Country: US (occurrence: US)
  Receive Date: 20130220
  Receipt Date: 20130220
  Transmission Date: 20140127
  Serious: No
  Sender: FDA-Public Use
  Company Number: US-PFIZER INC-2013063668

PATIENT
  Age: 80 Year
  Sex: Female
  Weight: 53.1 kg

DRUGS (2)
  1. LYRICA [Suspect]
     Indication: NEUROPATHY PERIPHERAL
     Dosage: 50 MG, 3X/DAY
     Dates: start: 201301
  2. INSULIN [Concomitant]
     Indication: DIABETES MELLITUS
     Dosage: 20 UNITS IN MORNING AND 18 UNITS AT NIGHT,

REACTIONS (1)
  - Vision blurred [Not Recovered/Not Resolved]
